FAERS Safety Report 8959216 (Version 5)
Quarter: 2013Q3

REPORT INFORMATION
  Report Type: Spontaneous
  Country: US (occurrence: US)
  Receive Date: 20121212
  Receipt Date: 20130808
  Transmission Date: 20140515
  Serious: Yes (Hospitalization, Other)
  Sender: FDA-Public Use
  Company Number: US-BIOGENIDEC-2012BI057752

PATIENT
  Age: 60 Year
  Sex: Female

DRUGS (9)
  1. AVONEX [Suspect]
     Indication: MULTIPLE SCLEROSIS
     Route: 030
     Dates: start: 19980201, end: 20070831
  2. AVONEX [Suspect]
     Indication: MULTIPLE SCLEROSIS
     Route: 030
     Dates: end: 200805
  3. AVONEX [Suspect]
     Indication: MULTIPLE SCLEROSIS
     Route: 030
     Dates: start: 20120827
  4. AVONEX [Suspect]
     Indication: MULTIPLE SCLEROSIS
     Route: 030
     Dates: start: 20120912
  5. LEVOTHYROXINE [Concomitant]
     Indication: HYPOTHYROIDISM
  6. DECADRON [Concomitant]
     Route: 042
  7. PROPRANOLOL [Concomitant]
  8. ASPIRIN [Concomitant]
     Indication: DEPRESSION
  9. ROCEPHIN [Concomitant]
     Route: 042

REACTIONS (14)
  - Stress [Unknown]
  - Anxiety [Unknown]
  - Cholangiocarcinoma [Recovered/Resolved]
  - Coronary artery disease [Recovered/Resolved]
  - Neoplasm malignant [Recovered/Resolved]
  - Hypertension [Not Recovered/Not Resolved]
  - Spinal compression fracture [Not Recovered/Not Resolved]
  - Osteoporosis [Not Recovered/Not Resolved]
  - Back pain [Not Recovered/Not Resolved]
  - Injection site haemorrhage [Not Recovered/Not Resolved]
  - Fatigue [Not Recovered/Not Resolved]
  - Paraesthesia [Not Recovered/Not Resolved]
  - Muscular weakness [Not Recovered/Not Resolved]
  - Chills [Recovered/Resolved]
